FAERS Safety Report 15041016 (Version 1)
Quarter: 2018Q2

REPORT INFORMATION
  Report Type: Other
  Country: GB (occurrence: GB)
  Receive Date: 20180621
  Receipt Date: 20180621
  Transmission Date: 20180711
  Serious: Yes (Hospitalization, Other)
  Sender: FDA-Public Use
  Company Number: GB-LUPIN PHARMACEUTICALS INC.-2018-04424

PATIENT
  Age: 45 Year
  Sex: Male
  Weight: 95.7 kg

DRUGS (4)
  1. ORLISTAT. [Suspect]
     Active Substance: ORLISTAT
     Indication: WEIGHT DECREASED
     Dosage: 6 DF, QD
     Route: 048
     Dates: start: 201705
  2. TRAMADOL HYDROCHLORIDE. [Suspect]
     Active Substance: TRAMADOL HYDROCHLORIDE
     Indication: PAIN
     Dosage: 50-100MG FOUR TIMES A DAY, AS NECESSARY
     Route: 048
     Dates: start: 20180423
  3. LACOSAMIDE. [Suspect]
     Active Substance: LACOSAMIDE
     Indication: EPILEPSY
     Dosage: 200 MG, QD
     Route: 048
  4. LEVETIRACETAM. [Suspect]
     Active Substance: LEVETIRACETAM
     Indication: EPILEPSY
     Dosage: 1500 MG, QD
     Route: 048

REACTIONS (5)
  - Contraindicated product administered [Unknown]
  - Vomiting [Unknown]
  - Urinary incontinence [Unknown]
  - Generalised tonic-clonic seizure [Recovered/Resolved with Sequelae]
  - Dyspepsia [Unknown]

NARRATIVE: CASE EVENT DATE: 20180519
